FAERS Safety Report 7969778-4 (Version None)
Quarter: 2011Q4

REPORT INFORMATION
  Report Type: 
  Country: None (occurrence: None)
  Receive Date: 20111212
  Receipt Date: 20111130
  Transmission Date: 20120403
  Serious: Yes (Hospitalization, Other)
  Sender: FDA-Public Use
  Company Number: US-BAYER-2011-091608

PATIENT
  Age: 27 Year
  Sex: Female

DRUGS (8)
  1. IBUPROFEN [Concomitant]
     Dosage: UNK UNK, PRN
  2. DROSPIRENONE AND ETHINYL ESTRADIOL [Suspect]
     Indication: CONTRACEPTION
     Dosage: UNK
     Dates: start: 20020401
  3. ASCORBIC ACID [Concomitant]
     Dosage: UNK UNK, PRN
  4. YASMIN [Suspect]
     Indication: CONTRACEPTION
     Dosage: UNK
     Dates: start: 20020401
  5. POTASSIUM ACETATE [Concomitant]
     Dosage: UNK UNK, PRN
  6. YAZ [Suspect]
     Indication: CONTRACEPTION
  7. ANTIBIOTICS [Concomitant]
  8. ANTIMIGRAINE PREPARATIONS [Concomitant]
     Dosage: UNK
     Dates: start: 20030101

REACTIONS (2)
  - CHOLECYSTECTOMY [None]
  - BILIARY DYSKINESIA [None]
